FAERS Safety Report 9698638 (Version 2)
Quarter: 2013Q4

REPORT INFORMATION
  Report Type: Report from Study
  Country: US (occurrence: US)
  Receive Date: 20131120
  Receipt Date: 20131120
  Transmission Date: 20140711
  Serious: Yes (Other)
  Sender: FDA-Public Use
  Company Number: US-ABBVIE-13P-163-1163281-00

PATIENT
  Age: 66 Year
  Sex: Female
  Weight: 57.66 kg

DRUGS (16)
  1. HUMIRA [Suspect]
     Indication: PSORIASIS
     Dates: start: 201309, end: 201309
  2. HUMIRA [Suspect]
     Dates: start: 201309
  3. PLAVIX [Concomitant]
     Indication: THROMBOSIS
  4. PREDNISONE [Concomitant]
     Indication: RHEUMATOID ARTHRITIS
  5. PREMARIN [Concomitant]
     Indication: HORMONE REPLACEMENT THERAPY
     Dosage: 0.3 MG DAILY, LOW DOSE
  6. MICARDIS [Concomitant]
     Indication: BLOOD PRESSURE
  7. SULAR [Concomitant]
     Indication: PRODUCT USED FOR UNKNOWN INDICATION
     Dosage: 30 MG DAILY
  8. REMERON [Concomitant]
     Indication: DEPRESSION
     Dosage: 30 MG DAILY
  9. XANAX [Concomitant]
     Indication: ANXIETY
  10. B12 [Concomitant]
     Indication: IRON DEFICIENCY ANAEMIA
     Route: 050
  11. ZOCOR [Concomitant]
     Indication: BLOOD CHOLESTEROL
  12. NEURONTIN [Concomitant]
     Indication: FIBROMYALGIA
  13. ZANTAC [Concomitant]
     Indication: GASTROOESOPHAGEAL REFLUX DISEASE
  14. PRILOSEC [Concomitant]
     Indication: GASTROOESOPHAGEAL REFLUX DISEASE
  15. ASPIRIN [Concomitant]
     Indication: COAGULOPATHY
  16. IRON [Concomitant]
     Indication: IRON DEFICIENCY ANAEMIA

REACTIONS (20)
  - Ear discomfort [Not Recovered/Not Resolved]
  - Upper respiratory tract infection [Not Recovered/Not Resolved]
  - Fatigue [Unknown]
  - Back pain [Not Recovered/Not Resolved]
  - Musculoskeletal chest pain [Not Recovered/Not Resolved]
  - Dyspnoea [Not Recovered/Not Resolved]
  - Pyrexia [Not Recovered/Not Resolved]
  - Ear infection fungal [Unknown]
  - Blood pressure increased [Unknown]
  - Hypersomnia [Unknown]
  - Feeling abnormal [Unknown]
  - Productive cough [Unknown]
  - Sputum discoloured [Unknown]
  - Weight decreased [Not Recovered/Not Resolved]
  - Aspergillus infection [Not Recovered/Not Resolved]
  - Pseudomonas infection [Not Recovered/Not Resolved]
  - Burning sensation [Not Recovered/Not Resolved]
  - Influenza [Not Recovered/Not Resolved]
  - Lacrimation increased [Not Recovered/Not Resolved]
  - Psoriasis [Not Recovered/Not Resolved]
